FAERS Safety Report 4813707-9 (Version None)
Quarter: 2005Q4

REPORT INFORMATION
  Report Type: 
  Country: None (occurrence: None)
  Receive Date: 20051028
  Receipt Date: 20050309
  Transmission Date: 20060501
  Serious: No
  Sender: FDA-Public Use
  Company Number: US-GLAXOSMITHKLINE-A0549023A

PATIENT
  Age: 81 Year
  Sex: Male

DRUGS (9)
  1. ADVAIR DISKUS 100/50 [Suspect]
     Indication: CHRONIC OBSTRUCTIVE PULMONARY DISEASE
     Dosage: 1PUFF TWICE PER DAY
     Route: 055
     Dates: end: 20040101
  2. METFORMIN HCL [Concomitant]
  3. IMODIUM [Concomitant]
  4. ZOCOR [Concomitant]
  5. PREVACID [Concomitant]
  6. ALTACE [Concomitant]
  7. QUININE [Concomitant]
  8. ASPIRIN [Concomitant]
  9. PLAVIX [Concomitant]

REACTIONS (1)
  - DYSPHONIA [None]
